FAERS Safety Report 12765609 (Version 1)
Quarter: 2016Q3

REPORT INFORMATION
  Report Type: Spontaneous
  Country: US (occurrence: US)
  Receive Date: 20160915
  Receipt Date: 20160915
  Transmission Date: 20161109
  Serious: No
  Sender: FDA-Public Use
  Company Number: None

PATIENT
  Sex: Female

DRUGS (1)
  1. XELJANZ [Suspect]
     Active Substance: TOFACITINIB CITRATE
     Indication: RHEUMATOID ARTHRITIS
     Route: 048
     Dates: start: 20141119

REACTIONS (6)
  - Deafness [None]
  - Intentional product use issue [None]
  - Therapy non-responder [None]
  - Perforation [None]
  - Inappropriate schedule of drug administration [None]
  - Herpes zoster [None]
